FAERS Safety Report 5799930-8 (Version None)
Quarter: 2008Q2

REPORT INFORMATION
  Report Type: 
  Country: None (occurrence: None)
  Receive Date: 20080626
  Receipt Date: 20070530
  Transmission Date: 20081010
  Serious: Yes (Hospitalization)
  Sender: FDA-Public Use
  Company Number: 500235

PATIENT
  Age: 72 Year
  Sex: Female

DRUGS (10)
  1. XELODA [Suspect]
     Indication: DRUG USE FOR UNKNOWN INDICATION
  2. TYKERB [Suspect]
     Indication: BREAST CANCER
     Dosage: 250 MG 6 PER DAY ORAL
     Route: 048
     Dates: start: 20070423
  3. NIASPAN [Concomitant]
  4. LOVASTATIN [Concomitant]
  5. ASPIRIN [Concomitant]
  6. METOCLOPHAMIDE (METOCLOPRAMIDE) [Concomitant]
  7. CARAFATE [Concomitant]
  8. PROTONIX [Concomitant]
  9. VITAMIN E (ALPHA-TOCOPHEROL) [Concomitant]
  10. BILBERRY (VACCINIUM MYRTILLUS) [Concomitant]

REACTIONS (6)
  - DEHYDRATION [None]
  - DIARRHOEA [None]
  - DRY SKIN [None]
  - PARAESTHESIA [None]
  - PYREXIA [None]
  - VOMITING [None]
